FAERS Safety Report 20547202 (Version 1)
Quarter: 2022Q1

REPORT INFORMATION
  Report Type: Spontaneous
  Country: US (occurrence: None)
  Receive Date: 20220303
  Receipt Date: 20220303
  Transmission Date: 20220423
  Serious: Yes (Other)
  Sender: FDA-Public Use
  Company Number: None

PATIENT
  Age: 35 Year
  Sex: Female
  Weight: 90.72 kg

DRUGS (5)
  1. MIRTAZAPINE [Suspect]
     Active Substance: MIRTAZAPINE
  2. CLONIDINE [Suspect]
     Active Substance: CLONIDINE
  3. ALBUTEROL [Suspect]
     Active Substance: ALBUTEROL
  4. SINGULAIR [Suspect]
     Active Substance: MONTELUKAST SODIUM
  5. ADVAIR HFA [Concomitant]
     Active Substance: FLUTICASONE PROPIONATE\SALMETEROL XINAFOATE

REACTIONS (5)
  - Pre-eclampsia [None]
  - Foetal exposure during pregnancy [None]
  - Maternal exposure during pregnancy [None]
  - Hypertension [None]
  - Caesarean section [None]

NARRATIVE: CASE EVENT DATE: 20200131
